FAERS Safety Report 11803306 (Version 1)
Quarter: 2015Q4

REPORT INFORMATION
  Report Type: Spontaneous
  Country: US (occurrence: US)
  Receive Date: 20151204
  Receipt Date: 20151204
  Transmission Date: 20160305
  Serious: Yes (Hospitalization)
  Sender: FDA-Public Use
  Company Number: US-JNJCP-30000314445

PATIENT
  Sex: Male

DRUGS (2)
  1. CLEAN AND CLEAR DEEP CLEANING [Suspect]
     Active Substance: SALICYLIC ACID
     Indication: PRODUCT USED FOR UNKNOWN INDICATION
     Route: 061
  2. CLEAN AND CLEAR CONTINUOUS CONTROL ACNE CLEANSER [Suspect]
     Active Substance: BENZOYL PEROXIDE

REACTIONS (2)
  - Product colour issue [Unknown]
  - Application site burn [Unknown]
